FAERS Safety Report 5746309-0 (Version None)
Quarter: 2008Q2

REPORT INFORMATION
  Report Type: 
  Country: None (occurrence: None)
  Receive Date: 20080520
  Receipt Date: 20080506
  Transmission Date: 20081010
  Serious: Yes (Death)
  Sender: FDA-Public Use
  Company Number: 2008BI006138

PATIENT
  Age: 37 Year
  Sex: Male
  Weight: 90 kg

DRUGS (6)
  1. TYSABRI [Suspect]
     Indication: RELAPSING-REMITTING MULTIPLE SCLEROSIS
     Dosage: 300 MG;QM;IV
     Route: 042
     Dates: start: 20070801, end: 20080303
  2. AVONEX [Concomitant]
  3. AMITRIPTYLINE HCL [Concomitant]
  4. INTERFERON BETA [Concomitant]
  5. CLONAZEPAM [Concomitant]
  6. TOPIRAMATE [Concomitant]

REACTIONS (2)
  - CARDIAC FAILURE [None]
  - FATIGUE [None]
